FAERS Safety Report 9902313 (Version 1)
Quarter: 2014Q1

REPORT INFORMATION
  Report Type: Spontaneous
  Country: AU (occurrence: AU)
  Receive Date: 20140217
  Receipt Date: 20140217
  Transmission Date: 20141002
  Serious: Yes (Other)
  Sender: FDA-Public Use
  Company Number: AU-PFIZER INC-2014037588

PATIENT
  Age: 45 Year
  Sex: Female

DRUGS (1)
  1. LINEZOLID [Suspect]

REACTIONS (3)
  - Bone marrow transplant [Unknown]
  - Treatment failure [Unknown]
  - Drug intolerance [Unknown]
